FAERS Safety Report 26175400 (Version 2)
Quarter: 2025Q4

REPORT INFORMATION
  Report Type: Spontaneous
  Country: MA (occurrence: MA)
  Receive Date: 20251218
  Receipt Date: 20251229
  Transmission Date: 20260117
  Serious: Yes (Life-Threatening, Other)
  Sender: PFIZER
  Company Number: MA-PFIZER INC-202500243419

PATIENT
  Age: 61 Year
  Sex: Male

DRUGS (4)
  1. PACLITAXEL [Suspect]
     Active Substance: PACLITAXEL
     Indication: Squamous cell carcinoma of skin
     Dosage: 310 MG, FIRST CYCLE
     Dates: start: 20250409
  2. PACLITAXEL [Suspect]
     Active Substance: PACLITAXEL
     Dosage: 310 MG, SECOND CYCLE
     Dates: start: 20250502
  3. CARBOPLATIN [Concomitant]
     Active Substance: CARBOPLATIN
     Indication: Squamous cell carcinoma of skin
     Dosage: 753 MG, FIRST CYCLE
     Dates: start: 20250409
  4. CARBOPLATIN [Concomitant]
     Active Substance: CARBOPLATIN
     Dosage: 753 MG, SECOND CYCLE
     Dates: start: 20250502

REACTIONS (1)
  - Anaphylactic shock [Unknown]

NARRATIVE: CASE EVENT DATE: 20250409
